FAERS Safety Report 11430307 (Version 1)
Quarter: 2015Q3

REPORT INFORMATION
  Report Type: Spontaneous
  Country: US (occurrence: US)
  Receive Date: 20150828
  Receipt Date: 20150828
  Transmission Date: 20151125
  Serious: No
  Sender: FDA-Public Use
  Company Number: US-ROCHE-1192504

PATIENT
  Sex: Female

DRUGS (3)
  1. RIBASPHERE [Suspect]
     Active Substance: RIBAVIRIN
     Indication: CHRONIC HEPATITIS C
     Dosage: DIVIDED DOSES
     Route: 048
     Dates: start: 20130206, end: 20130320
  2. PEGASYS [Suspect]
     Active Substance: PEGINTERFERON ALFA-2A
     Indication: CHRONIC HEPATITIS C
     Route: 058
     Dates: start: 20130206, end: 20130320
  3. TELAPREVIR [Suspect]
     Active Substance: TELAPREVIR
     Indication: CHRONIC HEPATITIS C
     Route: 065
     Dates: start: 20130206, end: 20130320

REACTIONS (22)
  - Fatigue [Unknown]
  - Headache [Unknown]
  - Rash [Recovering/Resolving]
  - Injection site reaction [Unknown]
  - Paraesthesia [Unknown]
  - Diarrhoea [Unknown]
  - Dysgeusia [Unknown]
  - Depression [Unknown]
  - White blood cell count decreased [Unknown]
  - Pain [Unknown]
  - Anaemia [Unknown]
  - Asthenia [Unknown]
  - Nausea [Unknown]
  - Oral mucosal blistering [Unknown]
  - Pyrexia [Unknown]
  - Chills [Unknown]
  - Anxiety [Unknown]
  - Decreased appetite [Unknown]
  - Influenza like illness [Unknown]
  - Dizziness [Unknown]
  - Lip blister [Unknown]
  - Gait disturbance [Unknown]
